FAERS Safety Report 18997318 (Version 2)
Quarter: 2021Q1

REPORT INFORMATION
  Report Type: Report from Study
  Country: US (occurrence: US)
  Receive Date: 20210311
  Receipt Date: 20210331
  Transmission Date: 20210420
  Serious: No
  Sender: FDA-Public Use
  Company Number: NVSC2021US055621

PATIENT
  Age: 63 Year
  Sex: Male

DRUGS (2)
  1. ENTRESTO [Suspect]
     Active Substance: SACUBITRIL\VALSARTAN
     Indication: PRODUCT USED FOR UNKNOWN INDICATION
     Dosage: UNK, BID
     Route: 048
  2. TASIGNA [Concomitant]
     Active Substance: NILOTINIB
     Indication: NEOPLASM MALIGNANT
     Dosage: UNK, UNKNOWN
     Route: 065

REACTIONS (7)
  - Memory impairment [Unknown]
  - Throat clearing [Unknown]
  - Cough [Unknown]
  - Product dose omission issue [Unknown]
  - Confusional state [Unknown]
  - Hypoacusis [Unknown]
  - Rhinorrhoea [Unknown]
